FAERS Safety Report 8064517-3 (Version None)
Quarter: 2012Q1

REPORT INFORMATION
  Report Type: 
  Country: None (occurrence: None)
  Receive Date: 20120123
  Receipt Date: 20120120
  Transmission Date: 20120608
  Serious: Yes (Other)
  Sender: FDA-Public Use
  Company Number: RU-PFIZER INC-2012016155

PATIENT
  Age: 48 Year
  Sex: Male

DRUGS (1)
  1. CARDURA [Suspect]
     Indication: BENIGN PROSTATIC HYPERPLASIA
     Dosage: 4 MG, 1ST DOSE
     Route: 048
     Dates: start: 20070101, end: 20070101

REACTIONS (4)
  - SWOLLEN TONGUE [None]
  - ASPHYXIA [None]
  - LIP SWELLING [None]
  - PHARYNGEAL OEDEMA [None]
